FAERS Safety Report 10244961 (Version 1)
Quarter: 2014Q2

REPORT INFORMATION
  Report Type: Spontaneous
  Country: US (occurrence: US)
  Receive Date: 20140618
  Receipt Date: 20140618
  Transmission Date: 20141212
  Serious: Yes (Hospitalization)
  Sender: FDA-Public Use
  Company Number: US-ACTAVIS-2014-13751

PATIENT
  Age: 28 Year
  Sex: Female

DRUGS (2)
  1. IBUPROFEN (AMALLC) [Suspect]
     Indication: ARTHRALGIA
     Dosage: UNK
     Route: 065
  2. PREDNISONE [Concomitant]
     Indication: MIXED CONNECTIVE TISSUE DISEASE
     Dosage: UNK, LOW DOSE
     Route: 065

REACTIONS (1)
  - Meningitis aseptic [Recovered/Resolved]
